FAERS Safety Report 5105316-1 (Version None)
Quarter: 2006Q3

REPORT INFORMATION
  Report Type: 
  Country: None (occurrence: None)
  Receive Date: 20060912
  Receipt Date: 20060824
  Transmission Date: 20061208
  Serious: Yes (Hospitalization, Other)
  Sender: FDA-Public Use
  Company Number: JP200607005179

PATIENT
  Age: 45 Year
  Sex: Male
  Weight: 67 kg

DRUGS (11)
  1. GEMZAR [Suspect]
     Indication: BILE DUCT CANCER STAGE III
     Dosage: BETWEEN 1200 400MG, INTRAVENOUS;
     Route: 042
     Dates: start: 20050101, end: 20060106
  2. GEMZAR [Suspect]
     Indication: BILE DUCT CANCER STAGE III
     Dosage: BETWEEN 1200 400MG, INTRAVENOUS;
     Route: 042
     Dates: start: 20060301
  3. IRINOTECAN HCL [Concomitant]
  4. TS 1  /JPN/ (GIMERACIL, OTERACIL POTASSIUM, TEGAFUR) [Concomitant]
  5. PARIET /JPN/(RABEPRAZOLE SODIUM) TABLET [Concomitant]
  6. PROMAC /JPN/(POLAPREZINC) [Concomitant]
  7. MARZULENE (SODIUM GUALENATE) [Concomitant]
  8. GASMOTIN (MOSAPRIDE CITRATE) [Concomitant]
  9. URSO 250 [Concomitant]
  10. BIO THREE (BACTERIA NOS) [Concomitant]
  11. ABOVIS (ACLATONIUM NAPADISILATE) [Concomitant]

REACTIONS (4)
  - ALOPECIA [None]
  - MALAISE [None]
  - METASTASES TO ABDOMINAL WALL [None]
  - VENA CAVA THROMBOSIS [None]
